FAERS Safety Report 8174051-8 (Version None)
Quarter: 2012Q1

REPORT INFORMATION
  Report Type: 
  Country: None (occurrence: None)
  Receive Date: 20120229
  Receipt Date: 20120214
  Transmission Date: 20120608
  Serious: Yes (Disabling)
  Sender: FDA-Public Use
  Company Number: GB-WATSON-2012-03070

PATIENT
  Age: 54 Year
  Sex: Male

DRUGS (1)
  1. CIPROFLOXACIN HCL [Suspect]
     Indication: PRODUCT USED FOR UNKNOWN INDICATION
     Route: 048

REACTIONS (2)
  - FATIGUE [None]
  - MYALGIA [None]
